FAERS Safety Report 15456537 (Version 1)
Quarter: 2018Q4

REPORT INFORMATION
  Report Type: Spontaneous
  Country: GB (occurrence: GB)
  Receive Date: 20181002
  Receipt Date: 20181002
  Transmission Date: 20190204
  Serious: Yes (Other)
  Sender: FDA-Public Use
  Company Number: GB-PFIZER INC-2018392458

PATIENT
  Age: 57 Year
  Sex: Female

DRUGS (7)
  1. DOXYCYCLINE HYCLATE. [Suspect]
     Active Substance: DOXYCYCLINE HYCLATE
     Indication: ANTIBIOTIC THERAPY
     Dosage: UNK (200MG STAT DOSE AND THEN 100MG DAILY FOR 6 DAYS)
     Route: 048
     Dates: start: 20180816
  2. OMEPRAZOLE SODIUM [Concomitant]
     Active Substance: OMEPRAZOLE SODIUM
     Dosage: UNK
  3. MORPHINE SULFATE. [Concomitant]
     Active Substance: MORPHINE SULFATE
     Dosage: UNK
  4. ONDANSETRON HYDROCHLORIDE. [Concomitant]
     Active Substance: ONDANSETRON HYDROCHLORIDE
     Dosage: UNK
  5. AMITRIPTYLINE HYDROCHLORIDE. [Concomitant]
     Active Substance: AMITRIPTYLINE HYDROCHLORIDE
     Dosage: UNK
  6. DIAZEPAM. [Concomitant]
     Active Substance: DIAZEPAM
     Dosage: UNK
  7. ALVERINE CITRATE [Concomitant]
     Active Substance: ALVERINE CITRATE
     Dosage: UNK

REACTIONS (3)
  - Crohn^s disease [Recovering/Resolving]
  - Malaise [Recovering/Resolving]
  - Back pain [Recovering/Resolving]
